FAERS Safety Report 5517421-6 (Version None)
Quarter: 2007Q4

REPORT INFORMATION
  Report Type: 
  Country: None (occurrence: None)
  Receive Date: 20071108
  Receipt Date: 20070725
  Transmission Date: 20080405
  Serious: Yes (Hospitalization)
  Sender: FDA-Public Use
  Company Number: 2007S1000293

PATIENT
  Age: 59 Year
  Sex: Male
  Weight: 90.7 kg

DRUGS (13)
  1. CUBICIN [Suspect]
     Indication: BACTERAEMIA
     Dosage: 3.5MG/KG;Q24H;IV
     Route: 042
     Dates: start: 20070701, end: 20070731
  2. CUBICIN [Suspect]
     Indication: ENDOCARDITIS
     Dosage: 3.5MG/KG;Q24H;IV
     Route: 042
     Dates: start: 20070701, end: 20070731
  3. ATENOLOL [Concomitant]
  4. REPAGLINIDE [Concomitant]
  5. FERROUS SULFATE TAB [Concomitant]
  6. PANTOPRAZOLE SODIUM [Concomitant]
  7. ALDACTONE /00252502/ [Concomitant]
  8. LIDODERM [Concomitant]
  9. DARVOCET /00758701/ [Concomitant]
  10. SPIRONOLACTONE [Concomitant]
  11. MORPHINE [Concomitant]
  12. LACTOBACILLUS ACIDOPHILUS [Concomitant]
  13. VANCOMYCIN [Concomitant]

REACTIONS (2)
  - ANTIMICROBIAL SUSCEPTIBILITY TEST RESISTANT [None]
  - BACTERAEMIA [None]
